FAERS Safety Report 16240168 (Version 2)
Quarter: 2019Q2

REPORT INFORMATION
  Report Type: Spontaneous
  Country: US (occurrence: US)
  Receive Date: 20190425
  Receipt Date: 20190509
  Transmission Date: 20190711
  Serious: No
  Sender: FDA-Public Use
  Company Number: US-BAUSCH-BL-2019-011781

PATIENT
  Age: 76 Year
  Sex: Female
  Weight: 49.94 kg

DRUGS (3)
  1. DILTIAZEM HCL ER [Suspect]
     Active Substance: DILTIAZEM HYDROCHLORIDE
     Dosage: IN THE EVENING
     Route: 048
     Dates: start: 20190414
  2. DILTIAZEM HCL ER [Suspect]
     Active Substance: DILTIAZEM HYDROCHLORIDE
     Indication: HYPERTENSION
     Dosage: IN THE MORNING
     Route: 048
     Dates: start: 20190414
  3. IRBESARTAN. [Concomitant]
     Active Substance: IRBESARTAN
     Indication: PRODUCT USED FOR UNKNOWN INDICATION

REACTIONS (4)
  - Product dispensing error [Unknown]
  - Wrong product administered [Unknown]
  - Rash erythematous [Unknown]
  - Rash pruritic [Unknown]

NARRATIVE: CASE EVENT DATE: 20190414
